FAERS Safety Report 4922047-9 (Version None)
Quarter: 2006Q1

REPORT INFORMATION
  Report Type: 
  Country: None (occurrence: None)
  Receive Date: 20060222
  Receipt Date: 20060222
  Transmission Date: 20060701
  Serious: Yes (Death)
  Sender: FDA-Public Use
  Company Number: None

PATIENT
  Age: 50 Year
  Sex: Female

DRUGS (3)
  1. ATACAND [Suspect]
     Indication: HYPERTENSION
     Dosage: 16 MG PER DAILY CHRONIC
  2. BENADRYL [Concomitant]
  3. PENICILLIN [Concomitant]

REACTIONS (8)
  - CARDIO-RESPIRATORY ARREST [None]
  - LARYNGEAL OEDEMA [None]
  - LYMPHADENOPATHY [None]
  - LYMPHOMA [None]
  - PHARYNGEAL OEDEMA [None]
  - STRIDOR [None]
  - THROAT TIGHTNESS [None]
  - TRACHEAL OEDEMA [None]
